FAERS Safety Report 6200925-0 (Version None)
Quarter: 2009Q2

REPORT INFORMATION
  Report Type: 
  Country: None (occurrence: None)
  Receive Date: 20090523
  Receipt Date: 20081117
  Transmission Date: 20091009
  Serious: Yes (Hospitalization)
  Sender: FDA-Public Use
  Company Number: US-ALEXION-A200800360

PATIENT
  Sex: Male

DRUGS (14)
  1. SOLIRIS [Suspect]
     Route: 042
  2. NORVASC [Concomitant]
     Indication: HYPERTENSION
     Dosage: 10 MG, QD
  3. LOTENSIN                           /00909102/ [Concomitant]
     Indication: HYPERTENSION
     Dosage: 40 MG, QD
  4. NEORAL [Concomitant]
     Dosage: 75 MG, HS
  5. LOVENOX [Concomitant]
     Dosage: 80 MG, QD
  6. LOVENOX [Concomitant]
     Dosage: 80 MG, QD
  7. FOLIC ACID [Concomitant]
     Dosage: 1 MG, QD
  8. NOVOLOG [Concomitant]
  9. LEVAQUIN [Concomitant]
     Dosage: 500 MG, QD
  10. CLARITIN                           /00917501/ [Concomitant]
     Dosage: 10 MG, QD
  11. LOPRESSOR [Concomitant]
     Indication: HYPERTENSION
     Dosage: 50 MG, BID
  12. OXYCONTIN [Concomitant]
     Dosage: 80 MG, BID
  13. PROTONIX                           /01263201/ [Concomitant]
     Dosage: 40 MG, BEFORE BREAKFAST
  14. SENOKOT                            /00142201/ [Concomitant]
     Dosage: 2 TABS, QD

REACTIONS (7)
  - ABDOMINAL PAIN UPPER [None]
  - BLOOD GLUCOSE INCREASED [None]
  - DUODENOGASTRIC REFLUX [None]
  - FATIGUE [None]
  - HYPOTENSION [None]
  - INSOMNIA [None]
  - PYREXIA [None]
